FAERS Safety Report 7676733-0 (Version None)
Quarter: 2011Q3

REPORT INFORMATION
  Report Type: 
  Country: None (occurrence: None)
  Receive Date: 20110811
  Receipt Date: 20110808
  Transmission Date: 20111222
  Serious: Yes (Death, Life-Threatening, Other)
  Sender: FDA-Public Use
  Company Number: AU-ROXANE LABORATORIES, INC.-2011-RO-01123RO

PATIENT
  Age: 49 Year
  Sex: Female

DRUGS (3)
  1. PROMETHAZINE [Suspect]
     Indication: ANAPHYLACTIC REACTION
  2. PREDNISONE [Suspect]
     Indication: ANAPHYLACTIC REACTION
     Route: 048
  3. EPINEPHRINE [Suspect]
     Indication: ANAPHYLACTIC REACTION
     Route: 030

REACTIONS (3)
  - GAS GANGRENE [None]
  - SEPSIS [None]
  - CLOSTRIDIAL INFECTION [None]
